FAERS Safety Report 17901341 (Version 1)
Quarter: 2020Q2

REPORT INFORMATION
  Report Type: Spontaneous
  Country: US (occurrence: US)
  Receive Date: 20200616
  Receipt Date: 20200616
  Transmission Date: 20200714
  Serious: No
  Sender: FDA-Public Use
  Company Number: US-ASTELLAS-2019US031498

PATIENT
  Age: 75 Year
  Sex: Female

DRUGS (2)
  1. VESICARE [Suspect]
     Active Substance: SOLIFENACIN SUCCINATE
     Indication: PRODUCT USED FOR UNKNOWN INDICATION
     Dosage: UNK UNK, ONCE DAILY
     Route: 065
  2. VESICARE [Suspect]
     Active Substance: SOLIFENACIN SUCCINATE
     Dosage: UNK UNK, ONCE DAILY
     Route: 065

REACTIONS (5)
  - Urinary incontinence [Unknown]
  - Insurance issue [Unknown]
  - Pollakiuria [Unknown]
  - Product dose omission [Unknown]
  - Drug ineffective [Unknown]
